FAERS Safety Report 7488657-2 (Version None)
Quarter: 2011Q2

REPORT INFORMATION
  Report Type: 
  Country: None (occurrence: None)
  Receive Date: 20110518
  Receipt Date: 20110510
  Transmission Date: 20111010
  Serious: Yes (Hospitalization)
  Sender: FDA-Public Use
  Company Number: A0926791A

PATIENT
  Age: 50 Year
  Sex: Female

DRUGS (4)
  1. CALCIUM CARBONATE [Concomitant]
  2. TYKERB [Suspect]
     Indication: BREAST CANCER
     Dosage: 5TAB PER DAY
     Route: 048
     Dates: start: 20101231
  3. VITAMIN D [Concomitant]
  4. XELODA [Suspect]
     Indication: BREAST CANCER
     Dates: end: 20110501

REACTIONS (17)
  - WEIGHT INCREASED [None]
  - DRY SKIN [None]
  - MUSCLE ATROPHY [None]
  - DEHYDRATION [None]
  - EATING DISORDER [None]
  - SKIN CHAPPED [None]
  - THINKING ABNORMAL [None]
  - ACNE [None]
  - GAIT DISTURBANCE [None]
  - MEMORY IMPAIRMENT [None]
  - ANGER [None]
  - INSOMNIA [None]
  - PAIN [None]
  - FATIGUE [None]
  - FOOD CRAVING [None]
  - MUSCLE SPASMS [None]
  - INAPPROPRIATE AFFECT [None]
